FAERS Safety Report 9626616 (Version 2)
Quarter: 2013Q4

REPORT INFORMATION
  Report Type: Report from Study
  Country: BR (occurrence: BR)
  Receive Date: 20131016
  Receipt Date: 20131016
  Transmission Date: 20140711
  Serious: Yes (Other)
  Sender: FDA-Public Use
  Company Number: BR-ABBVIE-13P-020-1090404-00

PATIENT
  Sex: Female
  Weight: 66 kg

DRUGS (2)
  1. HUMIRA [Suspect]
     Indication: RHEUMATOID ARTHRITIS
     Route: 058
     Dates: start: 2006
  2. CALCIUM [Concomitant]
     Indication: BONE DISORDER
     Route: 048
     Dates: start: 2009

REACTIONS (1)
  - Bone loss [Recovered/Resolved]
